FAERS Safety Report 18899879 (Version 3)
Quarter: 2021Q4

REPORT INFORMATION
  Report Type: Spontaneous
  Country: US (occurrence: US)
  Receive Date: 20210216
  Receipt Date: 20211118
  Transmission Date: 20220303
  Serious: Yes (Other)
  Sender: FDA-Public Use
  Company Number: US-PFIZER INC-2021153976

PATIENT
  Age: 53 Year
  Sex: Female

DRUGS (31)
  1. PROTONIX [Suspect]
     Active Substance: PANTOPRAZOLE SODIUM
     Indication: Gastrooesophageal reflux disease
     Dosage: UNK
     Dates: start: 2009, end: 2019
  2. PROTONIX [Suspect]
     Active Substance: PANTOPRAZOLE SODIUM
     Dosage: UNK
     Dates: start: 2013, end: 2019
  3. DEXILANT [Suspect]
     Active Substance: DEXLANSOPRAZOLE
     Indication: Gastrooesophageal reflux disease
     Dosage: 60 MG, 1X/DAY
     Dates: start: 2013
  4. DEXILANT [Suspect]
     Active Substance: DEXLANSOPRAZOLE
     Dosage: 30 MG
     Dates: start: 2013
  5. PRILOSEC [Suspect]
     Active Substance: OMEPRAZOLE MAGNESIUM
     Indication: Gastrooesophageal reflux disease
     Dosage: UNK
     Dates: start: 2013, end: 2019
  6. ESOMEPRAZOLE [Suspect]
     Active Substance: ESOMEPRAZOLE
     Indication: Gastrooesophageal reflux disease
     Dosage: 40 MG
     Dates: start: 2020
  7. OMEPRAZOLE [Suspect]
     Active Substance: OMEPRAZOLE
     Indication: Gastrooesophageal reflux disease
     Dosage: 40 MG
     Dates: end: 2020
  8. PANTOPRAZOLE [Suspect]
     Active Substance: PANTOPRAZOLE
     Indication: Gastrooesophageal reflux disease
     Dosage: 40 MG, 1X/DAY
     Dates: start: 2013
  9. LEVOFLOXACIN [Concomitant]
     Active Substance: LEVOFLOXACIN
     Indication: Infection
     Dosage: UNK
     Dates: start: 20130828, end: 20191126
  10. SULFAMETHOXAZOLE [Concomitant]
     Active Substance: SULFAMETHOXAZOLE
     Indication: Infection
     Dosage: UNK
     Dates: start: 20130622, end: 20191111
  11. AMOXICILLIN [Concomitant]
     Active Substance: AMOXICILLIN
     Indication: Infection
     Dosage: UNK
     Dates: start: 20150530, end: 20201227
  12. CIPROFLOXACIN [Concomitant]
     Active Substance: CIPROFLOXACIN
     Indication: Infection
     Dosage: UNK
     Dates: start: 20130801, end: 20200928
  13. DOXYCYCLINE [Concomitant]
     Active Substance: DOXYCYCLINE
     Indication: Infection
     Dosage: UNK
     Dates: start: 20170110, end: 20170130
  14. ERYTHROMYCIN [Concomitant]
     Active Substance: ERYTHROMYCIN
     Indication: Infection
     Dosage: UNK
     Dates: start: 20171229, end: 20171231
  15. NEOMYCIN [Concomitant]
     Active Substance: NEOMYCIN
     Indication: Infection
     Dosage: UNK
     Dates: start: 20171229, end: 20180104
  16. MELOXICAM [Concomitant]
     Active Substance: MELOXICAM
     Indication: Pain
     Dosage: UNK
     Dates: start: 20130903, end: 20191027
  17. NAPROXEN [Concomitant]
     Active Substance: NAPROXEN
     Indication: Pain
     Dosage: UNK
     Dates: start: 20151020, end: 20180716
  18. AMITRIPTYLINE [Concomitant]
     Active Substance: AMITRIPTYLINE
     Indication: Mood swings
     Dosage: UNK
     Dates: start: 20190712, end: 20190811
  19. DICLOFENAC [Concomitant]
     Active Substance: DICLOFENAC
     Indication: Pain
     Dosage: UNK
     Dates: start: 20141018, end: 20141117
  20. TRAMADOL [Concomitant]
     Active Substance: TRAMADOL
     Indication: Pain
     Dosage: UNK
     Dates: start: 20141126, end: 20141225
  21. KETOROLAC [Concomitant]
     Active Substance: KETOROLAC TROMETHAMINE
     Indication: Pain
     Dosage: UNK
     Dates: start: 20150729, end: 20191111
  22. HALOPERIDOL [Concomitant]
     Active Substance: HALOPERIDOL
     Indication: Mood swings
     Dosage: UNK
     Dates: start: 20200527, end: 20200802
  23. LOSARTAN [Concomitant]
     Active Substance: LOSARTAN
     Indication: Hypertension
     Dosage: UNK
     Dates: start: 20210118
  24. BENADRYL [Concomitant]
     Active Substance: DIPHENHYDRAMINE HYDROCHLORIDE
     Indication: Multiple allergies
     Dosage: UNK
  25. FAMOTIDINE [Concomitant]
     Active Substance: FAMOTIDINE
     Dosage: UNK
     Dates: start: 20131220, end: 20210103
  26. PEPCID AC [Concomitant]
     Active Substance: FAMOTIDINE
     Dosage: UNK
  27. PEPCID COMPLETE [Concomitant]
     Active Substance: CALCIUM CARBONATE\FAMOTIDINE\MAGNESIUM HYDROXIDE
     Dosage: UNK
  28. ZANTAC 150 (RANITIDINE HYDROCHLORIDE) [Concomitant]
     Active Substance: RANITIDINE HYDROCHLORIDE
     Dosage: UNK
  29. ZANTAC 75 (OTC) [Concomitant]
     Dosage: UNK
  30. RANITIDINE [Concomitant]
     Active Substance: RANITIDINE
     Dosage: UNK
     Dates: start: 20130709, end: 20151226
  31. TUMS [Concomitant]
     Active Substance: CALCIUM CARBONATE
     Indication: Antacid therapy
     Dosage: RECOMMENDED DOSAGE

REACTIONS (2)
  - Acute kidney injury [Not Recovered/Not Resolved]
  - Gastrooesophageal reflux disease [Not Recovered/Not Resolved]

NARRATIVE: CASE EVENT DATE: 20150101
